FAERS Safety Report 13335482 (Version 2)
Quarter: 2018Q1

REPORT INFORMATION
  Report Type: Spontaneous
  Country: US (occurrence: US)
  Receive Date: 20170315
  Receipt Date: 20180201
  Transmission Date: 20180508
  Serious: Yes (Other)
  Sender: FDA-Public Use
  Company Number: US-BRISTOL-MYERS SQUIBB COMPANY-BMS-2017-021463

PATIENT

DRUGS (1)
  1. SPRYCEL [Suspect]
     Active Substance: DASATINIB
     Indication: PRODUCT USED FOR UNKNOWN INDICATION
     Route: 065

REACTIONS (15)
  - Back pain [Unknown]
  - Weight decreased [Unknown]
  - Visual impairment [Unknown]
  - Myalgia [Unknown]
  - Nausea [Unknown]
  - Arthralgia [Unknown]
  - Weight increased [Unknown]
  - Insomnia [Unknown]
  - Pleural effusion [Unknown]
  - Fatigue [Unknown]
  - Aspiration pleural cavity [Unknown]
  - Headache [Unknown]
  - Dyspnoea [Unknown]
  - Bone pain [Unknown]
  - Neuralgia [Unknown]
